FAERS Safety Report 7211177-7 (Version None)
Quarter: 2011Q1

REPORT INFORMATION
  Report Type: 
  Country: None (occurrence: None)
  Receive Date: 20110105
  Receipt Date: 20101230
  Transmission Date: 20110831
  Serious: Yes (Other)
  Sender: FDA-Public Use
  Company Number: DE-MERCK-1101DEU00002

PATIENT
  Age: 70 Year
  Sex: Female

DRUGS (5)
  1. MOXIFLOXACIN HYDROCHLORIDE [Concomitant]
     Route: 048
  2. CANDESARTAN CILEXETIL [Concomitant]
     Route: 048
  3. OMEGA-3 ACID ETHYL ESTERS [Concomitant]
     Route: 048
  4. ZOCOR [Suspect]
     Indication: HYPERCHOLESTEROLAEMIA
     Route: 048
     Dates: start: 20091201
  5. METOPROLOL [Concomitant]
     Route: 048

REACTIONS (3)
  - SYSTEMIC LUPUS ERYTHEMATOSUS [None]
  - PERICARDIAL EFFUSION [None]
  - ANTINUCLEAR ANTIBODY INCREASED [None]
